FAERS Safety Report 9642231 (Version 2)
Quarter: 2013Q4

REPORT INFORMATION
  Report Type: Spontaneous
  Country: ES (occurrence: ES)
  Receive Date: 20131024
  Receipt Date: 20131030
  Transmission Date: 20140711
  Serious: Yes (Death, Hospitalization)
  Sender: FDA-Public Use
  Company Number: PHHY2013ES115804

PATIENT
  Age: 90 Year
  Sex: Female

DRUGS (3)
  1. FUROSEMIDE [Suspect]
     Indication: ACUTE MYOCARDIAL INFARCTION
     Route: 042
  2. FUROSEMIDE [Suspect]
     Indication: PULMONARY OEDEMA
  3. RISPERIDONE [Suspect]
     Indication: HALLUCINATION, VISUAL

REACTIONS (7)
  - Death [Fatal]
  - Sepsis [Unknown]
  - Skin ulcer [Unknown]
  - Pemphigoid [Unknown]
  - Skin lesion [Unknown]
  - Blister [Unknown]
  - Pruritus [Unknown]
